FAERS Safety Report 24005568 (Version 1)
Quarter: 2024Q2

REPORT INFORMATION
  Report Type: Report from Study
  Country: CN (occurrence: CN)
  Receive Date: 20240624
  Receipt Date: 20240624
  Transmission Date: 20240716
  Serious: Yes (Hospitalization)
  Sender: FDA-Public Use
  Company Number: CN-ROCHE-10000003169

PATIENT
  Age: 12 Year
  Sex: Male
  Weight: 50 kg

DRUGS (1)
  1. HEMLIBRA [Suspect]
     Active Substance: EMICIZUMAB-KXWH
     Indication: Factor VIII deficiency
     Route: 058

REACTIONS (7)
  - Diarrhoea [Unknown]
  - Hypokalaemia [Unknown]
  - Pyrexia [Recovering/Resolving]
  - Yellow skin [Unknown]
  - Skin discolouration [Unknown]
  - Eye pruritus [Unknown]
  - Asthenia [Unknown]
